FAERS Safety Report 4949216-6 (Version None)
Quarter: 2006Q1

REPORT INFORMATION
  Report Type: 
  Country: None (occurrence: None)
  Receive Date: 20060321
  Receipt Date: 20050711
  Transmission Date: 20060701
  Serious: Yes (Death, Disabling)
  Sender: FDA-Public Use
  Company Number: US-MERCK-0507USA01696

PATIENT
  Age: 86 Year
  Sex: Female

DRUGS (2)
  1. VIOXX [Suspect]
     Route: 048
     Dates: end: 20021009
  2. CELEBREX [Suspect]
     Route: 065
     Dates: end: 20021009

REACTIONS (5)
  - ANXIETY [None]
  - CARDIOGENIC SHOCK [None]
  - DEATH [None]
  - PAIN [None]
  - POLYTRAUMATISM [None]
